FAERS Safety Report 9801751 (Version 1)
Quarter: 2014Q1

REPORT INFORMATION
  Report Type: Report from Study
  Country: US (occurrence: US)
  Receive Date: 20140107
  Receipt Date: 20140107
  Transmission Date: 20141002
  Serious: No
  Sender: FDA-Public Use
  Company Number: US-VERTEX PHARMACEUTICALS INC-2014-000046

PATIENT
  Age: 52 Year
  Sex: Female
  Weight: 58.96 kg

DRUGS (3)
  1. VX-950 (TELAPREVIR) [Suspect]
     Indication: HEPATITIS C
     Dosage: 2 DF, TID
     Route: 048
     Dates: start: 20131230
  2. PEGASYS [Suspect]
     Indication: HEPATITIS C
     Dosage: 3 TAB, BID
     Route: 058
     Dates: start: 20131230
  3. RIBAVIRIN [Suspect]
     Indication: HEPATITIS C
     Dosage: 3 TAB BID
     Route: 048
     Dates: start: 20131230

REACTIONS (2)
  - Tooth injury [Not Recovered/Not Resolved]
  - Asthenia [Not Recovered/Not Resolved]
